FAERS Safety Report 4785628-1 (Version None)
Quarter: 2005Q3

REPORT INFORMATION
  Report Type: 
  Country: None (occurrence: None)
  Receive Date: 20050929
  Receipt Date: 20050916
  Transmission Date: 20060218
  Serious: Yes (Hospitalization, Disabling, Other)
  Sender: FDA-Public Use
  Company Number: 200508095

PATIENT
  Age: 46 Year
  Sex: Male
  Weight: 51.2565 kg

DRUGS (13)
  1. BOTOX [Suspect]
     Indication: MUSCLE SPASTICITY
     Dates: start: 20040706, end: 20041001
  2. BOTOX [Suspect]
     Indication: MUSCLE SPASTICITY
     Dosage: 300 UNITS ONCE IM
     Route: 030
     Dates: start: 20041001, end: 20041001
  3. BOTOX [Suspect]
     Indication: MUSCLE SPASTICITY
     Dosage: 300 UNITS ONCE IM
     Route: 030
     Dates: start: 20050430, end: 20050430
  4. BOTOX [Suspect]
     Indication: MUSCLE SPASTICITY
     Dosage: 400 UNITS ONCE IM
     Route: 030
     Dates: start: 20050720, end: 20050720
  5. BACLOFEN [Concomitant]
  6. MS CONTIN [Concomitant]
  7. ENDOCET [Concomitant]
  8. VALIUM [Concomitant]
  9. TIZANIDINE HCL [Concomitant]
  10. PROVIGIL [Concomitant]
  11. VITAMIN SUPPLEMENTS [Concomitant]
  12. MAGNESIUM [Concomitant]
  13. IICY HOT [Concomitant]

REACTIONS (15)
  - ABASIA [None]
  - ASTHENIA [None]
  - BACK PAIN [None]
  - BLOOD PRESSURE FLUCTUATION [None]
  - COUGH [None]
  - DIZZINESS [None]
  - DYSPHAGIA [None]
  - DYSPHONIA [None]
  - DYSPNOEA [None]
  - GASTRIC ULCER [None]
  - MOVEMENT DISORDER [None]
  - NECK PAIN [None]
  - SPEECH DISORDER [None]
  - VISION BLURRED [None]
  - WEIGHT DECREASED [None]
